FAERS Safety Report 8304063-2 (Version None)
Quarter: 2012Q2

REPORT INFORMATION
  Report Type: 
  Country: None (occurrence: None)
  Receive Date: 20120423
  Receipt Date: 20120412
  Transmission Date: 20120825
  Serious: Yes (Hospitalization, Disabling)
  Sender: FDA-Public Use
  Company Number: US-BRISTOL-MYERS SQUIBB COMPANY-16517757

PATIENT
  Age: 52 Year
  Sex: Male
  Weight: 124 kg

DRUGS (2)
  1. LYRICA [Suspect]
     Dosage: CAPS, 2 CAPS DAILY,INCREASED TO 75MG 4 CAPS DAILY AFTER 2 MONTHS
     Dates: start: 20100101
  2. COUMADIN [Suspect]

REACTIONS (2)
  - BONE DISORDER [None]
  - KNEE ARTHROPLASTY [None]
